FAERS Safety Report 6251373-9 (Version None)
Quarter: 2009Q2

REPORT INFORMATION
  Report Type: 
  Country: None (occurrence: None)
  Receive Date: 20090630
  Receipt Date: 20090623
  Transmission Date: 20091009
  Serious: No
  Sender: FDA-Public Use
  Company Number: B0578938A

PATIENT
  Sex: Female

DRUGS (2)
  1. AVANDAMET [Suspect]
     Dosage: 2008MG PER DAY
     Route: 048
     Dates: start: 20081127, end: 20090601
  2. GLIMEPIRIDE [Concomitant]
     Route: 065

REACTIONS (4)
  - CREATININE RENAL CLEARANCE INCREASED [None]
  - FLUID RETENTION [None]
  - OEDEMA PERIPHERAL [None]
  - WEIGHT INCREASED [None]
